FAERS Safety Report 8133622-5 (Version None)
Quarter: 2012Q1

REPORT INFORMATION
  Report Type: 
  Country: None (occurrence: None)
  Receive Date: 20120213
  Receipt Date: 20120201
  Transmission Date: 20120608
  Serious: Yes (Death, Other)
  Sender: FDA-Public Use
  Company Number: DK-TEVA-307344ISR

PATIENT
  Sex: Female

DRUGS (10)
  1. FRAGMIN [Concomitant]
  2. FERRO DURETTER [Concomitant]
  3. FUROSEMIDE [Concomitant]
  4. ALPRAZOLAM [Concomitant]
  5. LITHIUM CITRATE [Suspect]
     Indication: SCHIZOAFFECTIVE DISORDER
     Dosage: DOSE: 1+0+0+1.5, STYRKE: 6 MMOL LI+
     Route: 048
     Dates: end: 20111023
  6. ESCITALOPRAM [Suspect]
     Indication: SCHIZOAFFECTIVE DISORDER
     Route: 048
     Dates: end: 20111023
  7. MIRTAZAPINE [Suspect]
     Indication: SCHIZOAFFECTIVE DISORDER
     Route: 048
     Dates: end: 20111023
  8. ZIPRASIDONE HYDROCHLORIDE [Suspect]
     Indication: SCHIZOAFFECTIVE DISORDER
     Route: 048
     Dates: end: 20111023
  9. CENTYL MED KALIUMKLORID [Concomitant]
  10. AMLODIPIN ^ACTAVIS^ [Concomitant]

REACTIONS (11)
  - HUMERUS FRACTURE [None]
  - PYREXIA [None]
  - FALL [None]
  - OSTEOSYNTHESIS [None]
  - RENAL FAILURE [None]
  - HYPERTENSION [None]
  - RHABDOMYOLYSIS [None]
  - NEUROLEPTIC MALIGNANT SYNDROME [None]
  - LACTIC ACIDOSIS [None]
  - DYSPNOEA [None]
  - ORGAN FAILURE [None]
